FAERS Safety Report 19142924 (Version 1)
Quarter: 2021Q2

REPORT INFORMATION
  Report Type: Spontaneous
  Country: NL (occurrence: NL)
  Receive Date: 20210415
  Receipt Date: 20210415
  Transmission Date: 20210717
  Serious: Yes (Hospitalization)
  Sender: FDA-Public Use
  Company Number: NL-ALLERGAN-2115069US

PATIENT
  Sex: Male
  Weight: 2.9 kg

DRUGS (3)
  1. CITALOPRAM HYDROBROMIDE ? BP [Suspect]
     Active Substance: CITALOPRAM HYDROBROMIDE
     Indication: EXPOSURE DURING PREGNANCY
     Dosage: 20 MG, QD
     Route: 065
  2. CONCERTA [Suspect]
     Active Substance: METHYLPHENIDATE HYDROCHLORIDE
     Indication: EXPOSURE DURING PREGNANCY
     Dosage: 1DD 1 STUK
     Route: 065
  3. LABETALOL [Suspect]
     Active Substance: LABETALOL\LABETALOL HYDROCHLORIDE
     Indication: EXPOSURE DURING PREGNANCY
     Dosage: 200 MG, Q8HR
     Route: 065

REACTIONS (5)
  - Irritability [Unknown]
  - Pallor [Recovering/Resolving]
  - Neonatal hypoxia [Unknown]
  - Hypotonia neonatal [Recovering/Resolving]
  - Pregnancy [Unknown]
